FAERS Safety Report 6139109-3 (Version None)
Quarter: 2009Q2

REPORT INFORMATION
  Report Type: 
  Country: None (occurrence: None)
  Receive Date: 20090401
  Receipt Date: 20090323
  Transmission Date: 20091009
  Serious: Yes (Other)
  Sender: FDA-Public Use
  Company Number: JP-RANBAXY-2009RR-20468

PATIENT
  Age: 80 Year
  Sex: Female

DRUGS (2)
  1. PRAVASTATIN [Suspect]
     Indication: HYPERCHOLESTEROLAEMIA
     Dosage: UNK
  2. CYCLOSPORINE [Suspect]

REACTIONS (2)
  - DRUG ERUPTION [None]
  - PSORIASIS [None]
